FAERS Safety Report 6499043-6 (Version None)
Quarter: 2009Q4

REPORT INFORMATION
  Report Type: 
  Country: None (occurrence: None)
  Receive Date: 20091215
  Receipt Date: 20091209
  Transmission Date: 20100525
  Serious: Yes (Death, Hospitalization)
  Sender: FDA-Public Use
  Company Number: PHHY2009DE55007

PATIENT
  Age: 45 Year
  Sex: Female

DRUGS (3)
  1. CYCLOSPORINE [Suspect]
     Indication: ACUTE GRAFT VERSUS HOST DISEASE
  2. METHYLPREDNISOLONE [Suspect]
     Indication: ACUTE GRAFT VERSUS HOST DISEASE IN SKIN
  3. METHYLPREDNISOLONE [Suspect]
     Indication: ACUTE GRAFT VERSUS HOST DISEASE IN INTESTINE

REACTIONS (14)
  - ACUTE GRAFT VERSUS HOST DISEASE [None]
  - CENTRAL NERVOUS SYSTEM LESION [None]
  - CHRONIC GRAFT VERSUS HOST DISEASE [None]
  - DIARRHOEA [None]
  - EMBOLIC CEREBRAL INFARCTION [None]
  - FUNGAL TEST POSITIVE [None]
  - HAEMOLYSIS [None]
  - LUNG INFILTRATION [None]
  - PARESIS CRANIAL NERVE [None]
  - PYREXIA [None]
  - SEPTIC EMBOLUS [None]
  - STOMATITIS NECROTISING [None]
  - THROMBOTIC MICROANGIOPATHY [None]
  - ZYGOMYCOSIS [None]
